FAERS Safety Report 7169670-1 (Version None)
Quarter: 2010Q4

REPORT INFORMATION
  Report Type: 
  Country: None (occurrence: None)
  Receive Date: 20101217
  Receipt Date: 20101209
  Transmission Date: 20110411
  Serious: Yes (Hospitalization)
  Sender: FDA-Public Use
  Company Number: JP-PFIZER INC-2010106187

PATIENT
  Age: 63 Year
  Sex: Male
  Weight: 69 kg

DRUGS (8)
  1. AZULFIDINE [Suspect]
     Indication: POLYMYALGIA RHEUMATICA
     Dosage: 500 MG, 1X/DAY
     Route: 048
     Dates: start: 20100804, end: 20100817
  2. AZULFIDINE [Suspect]
     Dosage: 500 MG, 2X/DAY
     Route: 048
     Dates: start: 20100818, end: 20100819
  3. PREDNISOLONE [Concomitant]
     Dosage: 20 MG, 1X/DAY
     Route: 048
     Dates: start: 20100707, end: 20100714
  4. PREDNISOLONE [Concomitant]
     Dosage: 15 MG, 1X/DAY
     Route: 048
     Dates: start: 20100715, end: 20100721
  5. PREDNISOLONE [Concomitant]
     Dosage: 12.5 MG, 1X/DAY
     Route: 048
     Dates: start: 20100722, end: 20100804
  6. PREDNISOLONE [Concomitant]
     Dosage: 15 MG, 1X/DAY
     Route: 048
     Dates: start: 20100805, end: 20100819
  7. GASTER [Concomitant]
     Dosage: 20 MG, 1X/DAY
     Route: 048
     Dates: start: 20100707, end: 20100819
  8. MUCOSTA [Concomitant]
     Dosage: 100 MG, 3X/DAY
     Route: 048
     Dates: start: 20100707

REACTIONS (3)
  - PYREXIA [None]
  - SKIN DISORDER [None]
  - WHITE BLOOD CELL COUNT DECREASED [None]
